FAERS Safety Report 4633882-9 (Version None)
Quarter: 2005Q2

REPORT INFORMATION
  Report Type: 
  Country: None (occurrence: None)
  Receive Date: 20050408
  Receipt Date: 20050329
  Transmission Date: 20051028
  Serious: Yes (Other)
  Sender: FDA-Public Use
  Company Number: B0376434A

PATIENT
  Age: 35 Year
  Sex: Female

DRUGS (7)
  1. HYCAMTIN [Suspect]
     Dosage: 20 MG/M2/CYCLIC/INTRAPERITONEAL
     Route: 033
  2. SODIUM CHLORIDE [Concomitant]
  3. DEXAMETHASONE [Concomitant]
  4. CLEMASTINE [Concomitant]
  5. CIMETIDINE [Concomitant]
  6. PACLITAXEL [Concomitant]
  7. CARBOPLATIN [Concomitant]

REACTIONS (5)
  - ABDOMINAL PAIN [None]
  - NAUSEA [None]
  - NEUTROPENIA [None]
  - PERITONITIS [None]
  - VOMITING [None]
